FAERS Safety Report 9767754 (Version 10)
Quarter: 2014Q4

REPORT INFORMATION
  Report Type: Spontaneous
  Country: GB (occurrence: GB)
  Receive Date: 20131217
  Receipt Date: 20141211
  Transmission Date: 20150529
  Serious: Yes (Death, Other)
  Sender: FDA-Public Use
  Company Number: PHFR2013GB007159

PATIENT
  Age: 38 Year
  Sex: Female
  Weight: 64 kg

DRUGS (8)
  1. AMITRIPTYLINE [Concomitant]
     Active Substance: AMITRIPTYLINE
     Indication: PAIN
     Dosage: 30 MG, QD
     Route: 048
     Dates: start: 201301
  2. CLONAZEPAM. [Concomitant]
     Active Substance: CLONAZEPAM
     Indication: MUSCLE SPASTICITY
     Dosage: 2.5 MG, TID
     Route: 048
  3. CALCIUM [Concomitant]
     Active Substance: CALCIUM
  4. VITAMINS NOS [Concomitant]
     Active Substance: VITAMINS
     Dates: start: 201301
  5. GILENYA [Suspect]
     Active Substance: FINGOLIMOD HYDROCHLORIDE
     Indication: RELAPSING-REMITTING MULTIPLE SCLEROSIS
     Route: 048
     Dates: start: 20130930
  6. VITAMIN D [Concomitant]
     Active Substance: CHOLECALCIFEROL
     Indication: VITAMIN D DEFICIENCY
     Dosage: 800 U, UNK
     Route: 048
     Dates: start: 201301
  7. CITALOPRAM [Concomitant]
     Active Substance: CITALOPRAM HYDROBROMIDE
     Indication: DEPRESSION
     Dosage: 20 MG, QD
     Route: 048
     Dates: start: 201301
  8. MODAFINIL. [Concomitant]
     Active Substance: MODAFINIL
     Dates: start: 201301

REACTIONS (13)
  - Cardiac disorder [Fatal]
  - Drug level increased [Unknown]
  - Blood bicarbonate decreased [Unknown]
  - Pulmonary congestion [Unknown]
  - Blood chloride increased [Unknown]
  - Lymphocyte count decreased [Unknown]
  - Pulmonary oedema [Unknown]
  - Protein total decreased [Unknown]
  - Blood albumin decreased [Unknown]
  - Monocyte count increased [Unknown]
  - Eosinophil count decreased [Unknown]
  - Red blood cell count decreased [Unknown]
  - Haematocrit decreased [Unknown]

NARRATIVE: CASE EVENT DATE: 20131212
